FAERS Safety Report 20753538 (Version 2)
Quarter: 2023Q2

REPORT INFORMATION
  Report Type: Spontaneous
  Country: US (occurrence: None)
  Receive Date: 20220426
  Receipt Date: 20230420
  Transmission Date: 20230721
  Serious: No
  Sender: FDA-Public Use
  Company Number: US-ROCHE-3017960

PATIENT
  Sex: Male
  Weight: 83.990 kg

DRUGS (5)
  1. ESBRIET [Suspect]
     Active Substance: PIRFENIDONE
     Indication: Idiopathic pulmonary fibrosis
     Dosage: 9 TABLETS DAILY, ONGOING: NO
     Route: 048
     Dates: end: 20220202
  2. ESBRIET [Suspect]
     Active Substance: PIRFENIDONE
     Dosage: TAKE THIS DOSE FOR ONE WEEK, ONGOING: NO
     Route: 048
     Dates: start: 20220217, end: 20220223
  3. ESBRIET [Suspect]
     Active Substance: PIRFENIDONE
     Dosage: FOR ONE WEEK, ONGOING: YES
     Route: 048
     Dates: start: 20220224
  4. OFEV [Suspect]
     Active Substance: NINTEDANIB
     Indication: Idiopathic pulmonary fibrosis
     Route: 065
     Dates: start: 20220203
  5. ESBRIET [Suspect]
     Active Substance: PIRFENIDONE
     Indication: Idiopathic pulmonary fibrosis
     Route: 048
     Dates: start: 20161212

REACTIONS (2)
  - Drug ineffective [Unknown]
  - Pulmonary function test decreased [Unknown]
